FAERS Safety Report 7747205-X (Version None)
Quarter: 2011Q3

REPORT INFORMATION
  Report Type: 
  Country: None (occurrence: None)
  Receive Date: 20110913
  Receipt Date: 20110908
  Transmission Date: 20111222
  Serious: Yes (Other)
  Sender: FDA-Public Use
  Company Number: NL-PFIZER INC-2011211736

PATIENT
  Age: 66 Year
  Sex: Female
  Weight: 37.2 kg

DRUGS (2)
  1. OXYGEN [Concomitant]
  2. LYRICA [Suspect]
     Indication: NEURALGIA
     Dosage: 75 MG, 2X/DAY

REACTIONS (8)
  - PARAESTHESIA [None]
  - SKIN DISCOLOURATION [None]
  - MUSCULOSKELETAL PAIN [None]
  - MYALGIA [None]
  - TREMOR [None]
  - ABDOMINAL DISTENSION [None]
  - WEIGHT INCREASED [None]
  - DRUG WITHDRAWAL SYNDROME [None]
